FAERS Safety Report 10776799 (Version 2)
Quarter: 2015Q1

REPORT INFORMATION
  Report Type: Spontaneous
  Country: US (occurrence: US)
  Receive Date: 20150209
  Receipt Date: 20150212
  Transmission Date: 20150721
  Serious: Yes (Other)
  Sender: FDA-Public Use
  Company Number: CHPA2015US001546

PATIENT
  Age: 8 Year
  Sex: Female

DRUGS (3)
  1. MAALOX ANTACID [Suspect]
     Active Substance: ALUMINUM HYDROXIDE\DIMETHICONE\MAGNESIUM HYDROXIDE
     Indication: PROPHYLAXIS AGAINST GASTROINTESTINAL ULCER
     Dosage: 2 TO 4 DF, QW
     Route: 048
  2. MAALOX ANTACID [Suspect]
     Active Substance: ALUMINUM HYDROXIDE\DIMETHICONE\MAGNESIUM HYDROXIDE
     Dosage: UNK
     Route: 048
  3. MAALOX ANTACID LIQUID - UNKNOWN [Suspect]
     Active Substance: ALUMINUM HYDROXIDE\DIMETHICONE\MAGNESIUM HYDROXIDE
     Indication: GASTRIC ULCER
     Dosage: UNK
     Route: 065

REACTIONS (6)
  - House dust allergy [Not Recovered/Not Resolved]
  - Drug administered to patient of inappropriate age [Unknown]
  - Mycotic allergy [Not Recovered/Not Resolved]
  - Arthropod-borne disease [Not Recovered/Not Resolved]
  - Food allergy [Not Recovered/Not Resolved]
  - Product use issue [Unknown]
